FAERS Safety Report 4696934-3 (Version None)
Quarter: 2005Q2

REPORT INFORMATION
  Report Type: 
  Country: None (occurrence: None)
  Receive Date: 20050620
  Receipt Date: 20050421
  Transmission Date: 20051028
  Serious: No
  Sender: FDA-Public Use
  Company Number: US-YAMANOUCHI-YPA20050213

PATIENT
  Age: 86 Year
  Sex: Male

DRUGS (6)
  1. VESICARE [Suspect]
     Indication: HYPERTONIC BLADDER
     Dosage: 5 MG QD PO
     Route: 048
     Dates: start: 20050201
  2. TOPROL-XL [Concomitant]
  3. LORAZEPAM [Concomitant]
  4. PREVACID [Concomitant]
  5. FOSAMAX ONCE WEEKLY [Concomitant]
  6. VITAMINS [Concomitant]

REACTIONS (1)
  - URINARY RETENTION [None]
